FAERS Safety Report 15232099 (Version 2)
Quarter: 2018Q4

REPORT INFORMATION
  Report Type: Spontaneous
  Country: US (occurrence: US)
  Receive Date: 20180802
  Receipt Date: 20180814
  Transmission Date: 20190204
  Serious: Yes (Other)
  Sender: FDA-Public Use
  Company Number: US-PFIZER INC-2018308722

PATIENT
  Sex: Female

DRUGS (1)
  1. HYDROCORTISONE/NEOMYCIN SULFATE/POLYMYXIN B SULFATE [Suspect]
     Active Substance: HYDROCORTISONE\NEOMYCIN SULFATE\POLYMYXIN B SULFATE
     Indication: LABYRINTHITIS
     Dosage: UNK

REACTIONS (7)
  - Ear discomfort [Unknown]
  - Wrong product administered [Unknown]
  - Deafness [Recovering/Resolving]
  - Tinnitus [Unknown]
  - Ear swelling [Unknown]
  - Hypersensitivity [Unknown]
  - Ear pain [Unknown]
